FAERS Safety Report 10181506 (Version 2)
Quarter: 2014Q2

REPORT INFORMATION
  Report Type: Spontaneous
  Country: US (occurrence: US)
  Receive Date: 20140519
  Receipt Date: 20140527
  Transmission Date: 20141212
  Serious: No
  Sender: FDA-Public Use
  Company Number: US-009507513-1405USA007701

PATIENT
  Age: 67 Year
  Sex: Female

DRUGS (2)
  1. JANUVIA [Suspect]
     Indication: TYPE 2 DIABETES MELLITUS
     Dosage: 100 MG ONCE A DAY
     Route: 048
     Dates: start: 20140507
  2. INVOKANA [Concomitant]
     Dosage: UNK
     Dates: start: 20140430

REACTIONS (3)
  - Dysuria [Recovered/Resolved]
  - Bladder disorder [Not Recovered/Not Resolved]
  - Dizziness [Not Recovered/Not Resolved]
